FAERS Safety Report 15103710 (Version 1)
Quarter: 2018Q2

REPORT INFORMATION
  Report Type: Spontaneous
  Country: US (occurrence: US)
  Receive Date: 20180611
  Receipt Date: 20180611
  Transmission Date: 20180711
  Serious: No
  Sender: FDA-Public Use
  Company Number: None

PATIENT
  Age: 68 Year
  Sex: Female

DRUGS (4)
  1. PROLIA [Concomitant]
     Active Substance: DENOSUMAB
  2. CALCIUM-D3 [Concomitant]
  3. OCALIVA [Suspect]
     Active Substance: OBETICHOLIC ACID
     Indication: PRIMARY BILIARY CHOLANGITIS
     Route: 048
     Dates: start: 20170515
  4. URSODIOL. [Concomitant]
     Active Substance: URSODIOL

REACTIONS (2)
  - Biopsy [None]
  - Therapy cessation [None]

NARRATIVE: CASE EVENT DATE: 20180530
